FAERS Safety Report 6046991-7 (Version None)
Quarter: 2009Q1

REPORT INFORMATION
  Report Type: 
  Country: None (occurrence: None)
  Receive Date: 20090116
  Receipt Date: 20090106
  Transmission Date: 20090719
  Serious: Yes (Hospitalization, Other)
  Sender: FDA-Public Use
  Company Number: THYM-1000797

PATIENT
  Age: 16 Year
  Sex: Female
  Weight: 53 kg

DRUGS (13)
  1. THYMOGLOBULIN [Suspect]
     Indication: APLASTIC ANAEMIA
     Dosage: 2.8 MG/KG, QOD, INTRAVENOUS, 2.8 MG/KG, QD, INTRAVENOUS
     Route: 042
     Dates: start: 20080923, end: 20080924
  2. THYMOGLOBULIN [Suspect]
     Indication: APLASTIC ANAEMIA
     Dosage: 2.8 MG/KG, QOD, INTRAVENOUS, 2.8 MG/KG, QD, INTRAVENOUS
     Route: 042
     Dates: start: 20081014, end: 20081001
  3. ACYCLOVIR [Concomitant]
  4. SULFAMETHOXAZOLE AND TRIMETHOPRIM [Concomitant]
  5. CLEMASTINE FUMARATE [Concomitant]
  6. HIDROCORTIZON (HYDROCORTISONE ACETATE) [Concomitant]
  7. G-CSF (GRANULOCYTE COLONY STIMULATING FACTOR) [Concomitant]
  8. VANCOMYCIN [Concomitant]
  9. TAZOBACTAM [Concomitant]
  10. AMICACINA (AMIKACIN) [Concomitant]
  11. BELARA (CHLORMADINONE ACETATE, ETHINYLESTRADIOL) [Concomitant]
  12. VITAMIN B COMPLEX (ASCORBIC ACID, CALCIUM PANTOTHENATE, NICOTINAMIDE, [Concomitant]
  13. NISTATIN (NYSTATIN) [Concomitant]

REACTIONS (8)
  - ALANINE AMINOTRANSFERASE INCREASED [None]
  - ASPARTATE AMINOTRANSFERASE INCREASED [None]
  - BLOOD CREATINE INCREASED [None]
  - CATHETER SITE CELLULITIS [None]
  - GAMMA-GLUTAMYLTRANSFERASE INCREASED [None]
  - NEUTROPHIL COUNT INCREASED [None]
  - RETICULOCYTOSIS [None]
  - TREATMENT NONCOMPLIANCE [None]
